FAERS Safety Report 23627776 (Version 1)
Quarter: 2024Q1

REPORT INFORMATION
  Report Type: Spontaneous
  Country: GB (occurrence: GB)
  Receive Date: 20240313
  Receipt Date: 20240313
  Transmission Date: 20240410
  Serious: Yes (Life-Threatening)
  Sender: FDA-Public Use
  Company Number: None

PATIENT
  Age: 80 Year
  Sex: Male
  Weight: 50 kg

DRUGS (10)
  1. ATORVASTATIN [Suspect]
     Active Substance: ATORVASTATIN
     Dosage: ONE TO BE TAKEN EACH DAY
     Route: 065
     Dates: start: 20230201
  2. GLYCOPYRRONIUM [Concomitant]
     Active Substance: GLYCOPYRRONIUM
     Dosage: USE 200MCG 3HOURLY WHEN REQUIRED OR 600MCG OVER 24HOURS VIA SYRINGE PUMP
     Dates: start: 20231124
  3. NATALIZUMAB [Concomitant]
     Active Substance: NATALIZUMAB
     Dosage: HOSPITAL??POWDER AND SOLVENT FOR CONCENTRATE FOR SOLUTION FOR INFUSION
     Dates: start: 20240118
  4. ALBUTEROL [Concomitant]
     Active Substance: ALBUTEROL
     Dosage: ONE OR TWO PUFFS TO BE INHALED UP TO FOUR TIMES A DAY
     Dates: start: 20240131
  5. PREDNISOLONE [Concomitant]
     Active Substance: PREDNISOLONE
     Dosage: TOGETHER AT THE SAME TIME EACH DAY.
     Dates: start: 20240206
  6. PREDNISOLONE [Concomitant]
     Active Substance: PREDNISOLONE
     Dosage: DURATION: 43 DAYS
     Dates: start: 20231129, end: 20240111
  7. ACETAMINOPHEN [Concomitant]
     Active Substance: ACETAMINOPHEN
     Dosage: TWO TO BE TAKEN EVERY 4-6 HOURS UP TO FOUR TIMES A DAY, DURATION: 29 DAYS
     Dates: start: 20231120, end: 20231219
  8. MORPHINE [Concomitant]
     Active Substance: MORPHINE
     Indication: Oropharyngeal pain
     Dosage: 2.5MG-5MG, 2-4 HOURLY WHEN REQUIRED OR 10MG OVER 24 HOURS VIA SYRINGE PUMP.
     Dates: start: 20240109
  9. DAPAGLIFLOZIN [Concomitant]
     Active Substance: DAPAGLIFLOZIN
     Dosage: AS ADVISED BY CARDIOLOGY, DURATION: 43 DAYS
     Dates: start: 20231107, end: 20231220
  10. DOXYCYCLINE [Concomitant]
     Active Substance: DOXYCYCLINE
     Dosage: TWO TO BE TAKEN ON THE FIRST DAY THEN ONE TO BE TAKEN EACH DAY
     Dates: start: 20240206

REACTIONS (1)
  - Rash [Unknown]

NARRATIVE: CASE EVENT DATE: 20240129
